FAERS Safety Report 22263571 (Version 1)
Quarter: 2023Q2

REPORT INFORMATION
  Report Type: Spontaneous
  Country: IR (occurrence: IR)
  Receive Date: 20230428
  Receipt Date: 20230428
  Transmission Date: 20230722
  Serious: Yes (Other)
  Sender: FDA-Public Use
  Company Number: IR-RK PHARMA, INC-20230400024

PATIENT

DRUGS (1)
  1. MITOMYCIN [Suspect]
     Active Substance: MITOMYCIN
     Dosage: 0.05 MILLILITER OF 0.2 %

REACTIONS (1)
  - Necrotising retinitis [Recovering/Resolving]
